FAERS Safety Report 6535761-9 (Version None)
Quarter: 2010Q1

REPORT INFORMATION
  Report Type: 
  Country: None (occurrence: None)
  Receive Date: 20100106
  Receipt Date: 20091223
  Transmission Date: 20100710
  Serious: Yes (Hospitalization)
  Sender: FDA-Public Use
  Company Number: GB-DEXPHARM-20092219

PATIENT
  Age: 45 Year
  Sex: Female

DRUGS (9)
  1. OMEPRAZOLE [Suspect]
  2. DOXORUBICIN HCL [Suspect]
     Indication: BREAST CANCER METASTATIC
     Dosage: 50 MG/M2
  3. DOCETAXEL [Suspect]
     Indication: BREAST CANCER METASTATIC
     Dosage: 75 MG/M2
  4. ERYTHROMYCIN [Suspect]
     Indication: PROPHYLAXIS
     Dosage: 75 MG/M2
     Dates: start: 19950101
  5. DEXAMETHASONE [Concomitant]
  6. GRANISETRON [Concomitant]
  7. IBUPROFEN [Concomitant]
  8. METOCLOPRAMIDE [Concomitant]
  9. MORPHINE SULFATE [Concomitant]

REACTIONS (13)
  - ABDOMINAL DISTENSION [None]
  - BLOOD ALKALINE PHOSPHATASE INCREASED [None]
  - BLOOD BILIRUBIN INCREASED [None]
  - DRUG INTERACTION [None]
  - FEBRILE NEUTROPENIA [None]
  - GAMMA-GLUTAMYLTRANSFERASE INCREASED [None]
  - HAEMATEMESIS [None]
  - JAUNDICE [None]
  - MOUTH ULCERATION [None]
  - PSEUDOMEMBRANOUS COLITIS [None]
  - RASH ERYTHEMATOUS [None]
  - RASH MACULO-PAPULAR [None]
  - VOMITING [None]
